FAERS Safety Report 14922335 (Version 1)
Quarter: 2018Q2

REPORT INFORMATION
  Report Type: Spontaneous
  Country: US (occurrence: US)
  Receive Date: 20180522
  Receipt Date: 20180522
  Transmission Date: 20180711
  Serious: Yes (Life-Threatening, Hospitalization, Other)
  Sender: FDA-Public Use
  Company Number: US-WEST-WARD PHARMACEUTICALS CORP.-US-H14001-18-04064

PATIENT
  Age: 53 Year
  Sex: Male

DRUGS (1)
  1. TESTOSTERONE. [Suspect]
     Active Substance: TESTOSTERONE
     Indication: MEDICAL ANABOLIC THERAPY
     Dosage: ()
     Route: 030

REACTIONS (7)
  - Ventricular hypokinesia [Recovering/Resolving]
  - Diastolic dysfunction [Recovering/Resolving]
  - Pulmonary hypertension [Recovering/Resolving]
  - Cardiomyopathy [Recovering/Resolving]
  - Mitral valve incompetence [Recovering/Resolving]
  - Cardiomegaly [Recovering/Resolving]
  - Drug abuse [Unknown]
